FAERS Safety Report 19494077 (Version 1)
Quarter: 2021Q3

REPORT INFORMATION
  Report Type: Spontaneous
  Country: US (occurrence: US)
  Receive Date: 20210705
  Receipt Date: 20210705
  Transmission Date: 20211014
  Serious: Yes (Death, Other)
  Sender: FDA-Public Use
  Company Number: US-SA-2021SA219739

PATIENT
  Age: 91 Year
  Sex: Female
  Weight: 63.49 kg

DRUGS (3)
  1. APIXABAN [Suspect]
     Active Substance: APIXABAN
     Dosage: 5 MG, UNK
     Route: 048
  2. APIXABAN [Suspect]
     Active Substance: APIXABAN
     Dosage: 2.5 MG, UNK
     Route: 048
  3. PLAVIX [Suspect]
     Active Substance: CLOPIDOGREL BISULFATE
     Dosage: UNK
     Route: 048

REACTIONS (6)
  - Colitis [Unknown]
  - Gastric disorder [Fatal]
  - Cerebrovascular accident [Unknown]
  - Gastrointestinal haemorrhage [Recovered/Resolved]
  - Pneumonia [Unknown]
  - Dementia [Fatal]

NARRATIVE: CASE EVENT DATE: 202010
